FAERS Safety Report 15432717 (Version 4)
Quarter: 2019Q2

REPORT INFORMATION
  Report Type: Spontaneous
  Country: JP (occurrence: JP)
  Receive Date: 20180927
  Receipt Date: 20190503
  Transmission Date: 20190711
  Serious: Yes (Other)
  Sender: FDA-Public Use
  Company Number: JP-009507513-1808JPN003046J

PATIENT
  Age: 59 Year
  Sex: Male
  Weight: 48 kg

DRUGS (8)
  1. KEYTRUDA [Suspect]
     Active Substance: PEMBROLIZUMAB
     Indication: TRANSITIONAL CELL CARCINOMA
     Dosage: 200 MG, EVERY 4 WEEKS
     Route: 041
     Dates: start: 20180619, end: 20180807
  2. OXINORM [Concomitant]
     Indication: PAIN
     Dosage: 20 MG, QD
     Route: 048
     Dates: start: 20180501
  3. FENTOS [Concomitant]
     Active Substance: FENTANYL
     Indication: PAIN
     Dosage: 8 MG, QD
     Route: 062
     Dates: start: 20180514
  4. NAIXAN [Concomitant]
     Active Substance: NAPROXEN SODIUM
     Indication: TUMOUR ASSOCIATED FEVER
     Dosage: 100 MG, TID
     Route: 048
     Dates: start: 20180512
  5. MAGMITT [Concomitant]
     Active Substance: MAGNESIUM OXIDE
     Indication: CONSTIPATION
     Dosage: 660 MG, BID
     Route: 048
     Dates: start: 20180517
  6. FLUTIDE [Concomitant]
     Active Substance: FLUTICASONE PROPIONATE
     Indication: ASTHMA
     Dosage: 2 INHALATIONS PER/DAY
     Route: 055
  7. LANSOPRAZOLE. [Concomitant]
     Active Substance: LANSOPRAZOLE
     Indication: STRESS ULCER
     Dosage: 15 MG, QD
     Route: 048
     Dates: start: 20180523
  8. TRAZENTA [Concomitant]
     Active Substance: LINAGLIPTIN
     Indication: DIABETES MELLITUS
     Dosage: 5 MG, QD
     Route: 048
     Dates: start: 20180125

REACTIONS (3)
  - Inappropriate schedule of product administration [Unknown]
  - Malignant neoplasm progression [Not Recovered/Not Resolved]
  - Pulmonary fibrosis [Recovered/Resolved]

NARRATIVE: CASE EVENT DATE: 20180619
